FAERS Safety Report 9799910 (Version 2)
Quarter: 2014Q1

REPORT INFORMATION
  Report Type: Report from Study
  Country: US (occurrence: US)
  Receive Date: 20140106
  Receipt Date: 20140106
  Transmission Date: 20141002
  Serious: Yes (Other)
  Sender: FDA-Public Use
  Company Number: US-ASTRAZENECA-2012SE94524

PATIENT
  Age: 64 Year
  Sex: Female
  Weight: 61.2 kg

DRUGS (13)
  1. SYMBICORT PMDI [Suspect]
     Indication: CHRONIC OBSTRUCTIVE PULMONARY DISEASE
     Dosage: 160/4.5 MCG DAILY
     Route: 055
  2. SYMBICORT PMDI [Suspect]
     Indication: PULMONARY FUNCTION TEST DECREASED
     Dosage: 160/4.5 MCG DAILY
     Route: 055
  3. SYMBICORT PMDI [Suspect]
     Indication: CHRONIC OBSTRUCTIVE PULMONARY DISEASE
     Dosage: 160/4.5 MCG , TWO PUFFS DAILY
     Route: 055
  4. SYMBICORT PMDI [Suspect]
     Indication: PULMONARY FUNCTION TEST DECREASED
     Dosage: 160/4.5 MCG , TWO PUFFS DAILY
     Route: 055
  5. SYMBICORT PMDI [Suspect]
     Indication: CHRONIC OBSTRUCTIVE PULMONARY DISEASE
     Dosage: 160/4.5 MCG , THREE PUFFS DAILY
     Route: 055
  6. SYMBICORT PMDI [Suspect]
     Indication: PULMONARY FUNCTION TEST DECREASED
     Dosage: 160/4.5 MCG , THREE PUFFS DAILY
     Route: 055
  7. SYMBICORT PMDI [Suspect]
     Indication: CHRONIC OBSTRUCTIVE PULMONARY DISEASE
     Dosage: 160/4.5, TWO PUFFS TWO TIMES A DAY
     Route: 055
     Dates: end: 201312
  8. SYMBICORT PMDI [Suspect]
     Indication: PULMONARY FUNCTION TEST DECREASED
     Dosage: 160/4.5, TWO PUFFS TWO TIMES A DAY
     Route: 055
     Dates: end: 201312
  9. SYMBICORT PMDI [Suspect]
     Indication: CHRONIC OBSTRUCTIVE PULMONARY DISEASE
     Dosage: 160/4.5, TWO PUFFS THREE TIMES A DAY
     Route: 055
  10. SYMBICORT PMDI [Suspect]
     Indication: PULMONARY FUNCTION TEST DECREASED
     Dosage: 160/4.5, TWO PUFFS THREE TIMES A DAY
     Route: 055
  11. ENALAPRIL [Concomitant]
     Indication: HYPERTENSION
  12. ADVAIR [Concomitant]
  13. UNSPECIFIED MEDICATION [Concomitant]
     Indication: SLEEP DISORDER

REACTIONS (11)
  - Total lung capacity decreased [Unknown]
  - Pulmonary function test decreased [Unknown]
  - Fall [Unknown]
  - Chronic obstructive pulmonary disease [Unknown]
  - Dyspnoea [Not Recovered/Not Resolved]
  - Respiratory disorder [Unknown]
  - Insomnia [Unknown]
  - Malaise [Recovered/Resolved]
  - Weight decreased [Recovering/Resolving]
  - Drug dose omission [Not Recovered/Not Resolved]
  - Intentional drug misuse [Unknown]
